FAERS Safety Report 6293293-X (Version None)
Quarter: 2009Q3

REPORT INFORMATION
  Report Type: 
  Country: None (occurrence: None)
  Receive Date: 20090731
  Receipt Date: 20090723
  Transmission Date: 20100115
  Serious: Yes (Other)
  Sender: FDA-Public Use
  Company Number: US-AMGEN-QUU352683

PATIENT
  Sex: Female

DRUGS (6)
  1. ENBREL [Suspect]
     Indication: RHEUMATOID ARTHRITIS
     Route: 058
     Dates: start: 20040520
  2. METHOTREXATE [Concomitant]
     Route: 048
  3. FOLIC ACID [Concomitant]
  4. ZYRTEC [Concomitant]
  5. FOSAMAX [Concomitant]
  6. PREDNISONE TAB [Concomitant]

REACTIONS (9)
  - BREAST CANCER [None]
  - FALL [None]
  - GRAVITATIONAL OEDEMA [None]
  - INFLUENZA LIKE ILLNESS [None]
  - OCULAR SARCOIDOSIS [None]
  - OSTEOPENIA [None]
  - PAIN IN EXTREMITY [None]
  - PULMONARY SARCOIDOSIS [None]
  - RHEUMATOID ARTHRITIS [None]
